FAERS Safety Report 4401019-7 (Version None)
Quarter: 2004Q3

REPORT INFORMATION
  Report Type: 
  Country: None (occurrence: None)
  Receive Date: 20040907
  Receipt Date: 20030923
  Transmission Date: 20050211
  Serious: No
  Sender: FDA-Public Use
  Company Number: US-BRISTOL-MYERS SQUIBB COMPANY-12390696

PATIENT
  Age: 71 Year
  Sex: Female
  Weight: 86 kg

DRUGS (9)
  1. COUMADIN [Suspect]
     Indication: CARDIAC FIBRILLATION
     Dosage: 1 MG DAILY FOR FIVE DAYS, ALTERNATING WITH 1.5 MG
     Route: 048
  2. LANOXIN [Concomitant]
  3. SYNTHROID [Concomitant]
  4. THEOPHYLLINE [Concomitant]
  5. ZESTRIL [Concomitant]
  6. ZYRTEC [Concomitant]
  7. TRANXENE [Concomitant]
  8. FLEXERIL [Concomitant]
  9. AMIODARONE HCL [Concomitant]

REACTIONS (1)
  - DRUG INEFFECTIVE [None]
